FAERS Safety Report 7864226-7 (Version None)
Quarter: 2011Q4

REPORT INFORMATION
  Report Type: 
  Country: None (occurrence: None)
  Receive Date: 20111028
  Receipt Date: 20111021
  Transmission Date: 20120403
  Serious: Yes (Other)
  Sender: FDA-Public Use
  Company Number: CA-PFIZER INC-2011244488

PATIENT
  Age: 75 Year
  Sex: Male

DRUGS (4)
  1. LATANOPROST [Suspect]
     Indication: GLAUCOMA
     Dosage: UNK
     Route: 047
  2. NEXIUM [Concomitant]
     Indication: NAUSEA
     Dosage: 40 MG, 1X/DAY IN THE MORNING
  3. XALATAN [Suspect]
     Indication: GLAUCOMA
     Dosage: 1 GTT IN BOTH EYES, 1X/DAY AT BEDTIME
     Route: 047
  4. ATIVAN [Concomitant]
     Indication: FEELING OF RELAXATION
     Dosage: 1 MG, 1X/DAY AT NIGHT

REACTIONS (1)
  - CATARACT [None]
